FAERS Safety Report 25509305 (Version 2)
Quarter: 2025Q3

REPORT INFORMATION
  Report Type: Spontaneous
  Country: US (occurrence: US)
  Receive Date: 20250703
  Receipt Date: 20250929
  Transmission Date: 20251020
  Serious: No
  Sender: PFIZER
  Company Number: US-PFIZER INC-202500133552

PATIENT
  Age: 64 Year
  Sex: Male

DRUGS (2)
  1. IBRANCE [Suspect]
     Active Substance: PALBOCICLIB
     Route: 048
  2. IBRANCE [Suspect]
     Active Substance: PALBOCICLIB
     Route: 048

REACTIONS (6)
  - Tooth extraction [Unknown]
  - Nausea [Unknown]
  - Bone pain [Unknown]
  - Movement disorder [Unknown]
  - Brain fog [Unknown]
  - Abdominal discomfort [Unknown]
